FAERS Safety Report 20922093 (Version 2)
Quarter: 2025Q2

REPORT INFORMATION
  Report Type: Spontaneous
  Country: US (occurrence: US)
  Receive Date: 20220607
  Receipt Date: 20250621
  Transmission Date: 20250717
  Serious: Yes (Other)
  Sender: AUROBINDO
  Company Number: US-MLMSERVICE-20220429-3522897-1

PATIENT
  Age: 7 Decade
  Sex: Female

DRUGS (31)
  1. DEXAMETHASONE [Interacting]
     Active Substance: DEXAMETHASONE
     Indication: Plasma cell myeloma
     Route: 065
  2. BORTEZOMIB [Suspect]
     Active Substance: BORTEZOMIB
     Indication: Bronchopulmonary aspergillosis
     Route: 065
  3. BORTEZOMIB [Suspect]
     Active Substance: BORTEZOMIB
     Indication: Plasma cell myeloma refractory
  4. CYCLOPHOSPHAMIDE [Suspect]
     Active Substance: CYCLOPHOSPHAMIDE
     Indication: Bronchopulmonary aspergillosis
     Route: 065
  5. CYCLOPHOSPHAMIDE [Suspect]
     Active Substance: CYCLOPHOSPHAMIDE
     Indication: Plasma cell myeloma refractory
  6. POMALIDOMIDE [Suspect]
     Active Substance: POMALIDOMIDE
     Indication: Bronchopulmonary aspergillosis
     Route: 065
  7. POMALIDOMIDE [Suspect]
     Active Substance: POMALIDOMIDE
     Indication: Plasma cell myeloma refractory
  8. BENDAMUSTINE [Suspect]
     Active Substance: BENDAMUSTINE
     Indication: Bronchopulmonary aspergillosis
     Route: 065
  9. BENDAMUSTINE [Suspect]
     Active Substance: BENDAMUSTINE
     Indication: Plasma cell myeloma refractory
  10. CARFILZOMIB [Suspect]
     Active Substance: CARFILZOMIB
     Indication: Plasma cell myeloma
     Route: 065
  11. CEVOSTAMAB [Suspect]
     Active Substance: CEVOSTAMAB
     Indication: Bronchopulmonary aspergillosis
     Route: 065
  12. CEVOSTAMAB [Suspect]
     Active Substance: CEVOSTAMAB
     Indication: Plasma cell myeloma refractory
  13. CISPLATIN [Suspect]
     Active Substance: CISPLATIN
     Indication: Bronchopulmonary aspergillosis
     Route: 065
  14. CISPLATIN [Suspect]
     Active Substance: CISPLATIN
     Indication: Plasma cell myeloma refractory
  15. DARATUMUMAB [Suspect]
     Active Substance: DARATUMUMAB
     Indication: Bronchopulmonary aspergillosis
     Route: 065
  16. DARATUMUMAB [Suspect]
     Active Substance: DARATUMUMAB
     Indication: Plasma cell myeloma refractory
  17. ETOPOSIDE [Suspect]
     Active Substance: ETOPOSIDE
     Indication: Bronchopulmonary aspergillosis
     Route: 065
  18. ETOPOSIDE [Suspect]
     Active Substance: ETOPOSIDE
     Indication: Plasma cell myeloma refractory
  19. FLUDARABINE [Suspect]
     Active Substance: FLUDARABINE PHOSPHATE
     Indication: Bronchopulmonary aspergillosis
     Route: 065
  20. FLUDARABINE [Suspect]
     Active Substance: FLUDARABINE PHOSPHATE
     Indication: Plasma cell myeloma refractory
  21. ISAVUCONAZOLE [Interacting]
     Active Substance: ISAVUCONAZOLE
     Indication: Bronchopulmonary aspergillosis
     Dosage: 372 MILLIGRAM, ONCE A DAY
     Route: 042
  22. ISAVUCONAZOLE [Interacting]
     Active Substance: ISAVUCONAZOLE
     Route: 048
  23. ISAVUCONAZOLE [Interacting]
     Active Substance: ISAVUCONAZOLE
     Route: 042
  24. LENALIDOMIDE [Suspect]
     Active Substance: LENALIDOMIDE
     Indication: Bronchopulmonary aspergillosis
     Route: 065
  25. LENALIDOMIDE [Suspect]
     Active Substance: LENALIDOMIDE
     Indication: Plasma cell myeloma refractory
  26. MICAFUNGIN [Suspect]
     Active Substance: MICAFUNGIN SODIUM
     Indication: Bronchopulmonary aspergillosis
     Dosage: 100 MILLIGRAM, ONCE A DAY
     Route: 042
  27. SELINEXOR [Suspect]
     Active Substance: SELINEXOR
     Indication: Plasma cell myeloma
     Route: 065
  28. TALQUETAMAB [Suspect]
     Active Substance: TALQUETAMAB
     Indication: Bronchopulmonary aspergillosis
     Route: 065
  29. TALQUETAMAB [Suspect]
     Active Substance: TALQUETAMAB
     Indication: Plasma cell myeloma refractory
  30. ACYCLOVIR [Concomitant]
     Active Substance: ACYCLOVIR
     Indication: Antiviral prophylaxis
     Dosage: 400 MILLIGRAM, TWO TIMES A DAY
     Route: 065
  31. ATOVAQUONE [Concomitant]
     Active Substance: ATOVAQUONE
     Indication: Antifungal prophylaxis
     Dosage: 1.5 GRAM, ONCE A DAY
     Route: 065

REACTIONS (15)
  - Nausea [Unknown]
  - Oesophageal infection [Unknown]
  - Bronchopulmonary aspergillosis [Unknown]
  - Pancytopenia [Unknown]
  - Neutropenia [Unknown]
  - Oesophageal ulcer [Unknown]
  - Dyspnoea [Recovering/Resolving]
  - Drug interaction [Recovered/Resolved]
  - Drug level increased [Unknown]
  - Dizziness [Unknown]
  - Tinnitus [Unknown]
  - Pyrexia [Unknown]
  - Productive cough [Recovering/Resolving]
  - Lymphopenia [Unknown]
  - Dyspepsia [Unknown]
